FAERS Safety Report 14654621 (Version 2)
Quarter: 2018Q2

REPORT INFORMATION
  Report Type: Spontaneous
  Country: DE (occurrence: DE)
  Receive Date: 20180319
  Receipt Date: 20180404
  Transmission Date: 20180711
  Serious: Yes (Death)
  Sender: FDA-Public Use
  Company Number: DE-PFIZER INC-2018112323

PATIENT
  Age: 79 Year
  Sex: Male

DRUGS (5)
  1. VENLAFAXINE HCL [Interacting]
     Active Substance: VENLAFAXINE HYDROCHLORIDE
     Dosage: 37.5 MG, DAILY
     Route: 048
     Dates: start: 20170207
  2. RAMIPRIL. [Suspect]
     Active Substance: RAMIPRIL
     Dosage: 2.5 MG, DAILY
     Route: 048
     Dates: start: 20170207
  3. TAMSULOSIN HEXAL [Interacting]
     Active Substance: TAMSULOSIN HYDROCHLORIDE
     Dosage: 0.4 MG, DAILY
     Route: 065
     Dates: start: 20170206, end: 20170207
  4. MELPERON [Interacting]
     Active Substance: MELPERONE
     Dosage: 15 MG, DAILY
     Route: 065
     Dates: start: 20170207
  5. FINASTERID [Interacting]
     Active Substance: FINASTERIDE
     Dosage: 5 MG, DAILY
     Route: 065
     Dates: start: 20170207

REACTIONS (2)
  - Drug interaction [Fatal]
  - Death [Fatal]

NARRATIVE: CASE EVENT DATE: 20170208
